FAERS Safety Report 19912189 (Version 1)
Quarter: 2021Q4

REPORT INFORMATION
  Report Type: Spontaneous
  Country: GB (occurrence: GB)
  Receive Date: 20211004
  Receipt Date: 20211004
  Transmission Date: 20220303
  Serious: Yes (Other)
  Sender: FDA-Public Use
  Company Number: None

PATIENT
  Age: 63 Year
  Sex: Female

DRUGS (4)
  1. GABAPENTIN [Suspect]
     Active Substance: GABAPENTIN
     Indication: Ill-defined disorder
     Dosage: 300 MILLIGRAM, TID (300MG X 3 PER DAY   )
     Route: 048
     Dates: start: 20210630
  2. GABAPENTIN [Suspect]
     Active Substance: GABAPENTIN
     Indication: Nerve compression
  3. GABAPENTIN [Suspect]
     Active Substance: GABAPENTIN
     Indication: Sciatica
  4. METFORMIN HYDROCHLORIDE [Concomitant]
     Active Substance: METFORMIN HYDROCHLORIDE
     Indication: Ill-defined disorder
     Dosage: UNK

REACTIONS (3)
  - Joint stiffness [Unknown]
  - Pain in extremity [Recovering/Resolving]
  - Arthralgia [Unknown]

NARRATIVE: CASE EVENT DATE: 20210902
